FAERS Safety Report 10669571 (Version 6)
Quarter: 2015Q4

REPORT INFORMATION
  Report Type: Report from Study
  Country: US (occurrence: US)
  Receive Date: 20141222
  Receipt Date: 20151109
  Transmission Date: 20160304
  Serious: Yes (Hospitalization)
  Sender: FDA-Public Use
  Company Number: US-SA-2014SA166614

PATIENT
  Age: 56 Year
  Sex: Female

DRUGS (11)
  1. VITAMINS NOS [Concomitant]
     Active Substance: VITAMINS
  2. PRAVASTATIN [Concomitant]
     Active Substance: PRAVASTATIN\PRAVASTATIN SODIUM
     Indication: BLOOD CHOLESTEROL
     Dates: start: 2010
  3. FOLIC ACID. [Concomitant]
     Active Substance: FOLIC ACID
  4. LEXAPRO [Concomitant]
     Active Substance: ESCITALOPRAM OXALATE
     Indication: ANTIDEPRESSANT THERAPY
     Dates: start: 2012
  5. VESICARE [Concomitant]
     Active Substance: SOLIFENACIN SUCCINATE
     Indication: CATHETER PLACEMENT
     Dates: start: 2009
  6. CIPRO [Concomitant]
     Active Substance: CIPROFLOXACIN HYDROCHLORIDE
     Indication: MEDICAL DEVICE CHANGE
     Dosage: 1-1 DAILY FOR 2 DAYS WHEN CATHETER WAS CHANGED.
     Dates: start: 2010
  7. BUPROPION. [Concomitant]
     Active Substance: BUPROPION
  8. PRIMIDONE. [Concomitant]
     Active Substance: PRIMIDONE
  9. AUBAGIO [Suspect]
     Active Substance: TERIFLUNOMIDE
     Indication: MULTIPLE SCLEROSIS
     Route: 048
     Dates: start: 20141030, end: 201509
  10. BACLOFEN. [Concomitant]
     Active Substance: BACLOFEN
     Indication: MUSCLE SPASTICITY
     Dates: start: 1987
  11. VITAMIN B12 [Concomitant]
     Active Substance: CYANOCOBALAMIN

REACTIONS (8)
  - Asthenia [Not Recovered/Not Resolved]
  - Haemorrhage [Not Recovered/Not Resolved]
  - Pulmonary congestion [Not Recovered/Not Resolved]
  - Pneumonia [Recovered/Resolved]
  - Foreign body aspiration [Recovered/Resolved]
  - Bacterial infection [Unknown]
  - Feeding tube complication [Not Recovered/Not Resolved]
  - Palpitations [Unknown]

NARRATIVE: CASE EVENT DATE: 2015
